FAERS Safety Report 13265394 (Version 1)
Quarter: 2017Q1

REPORT INFORMATION
  Report Type: Spontaneous
  Country: SE (occurrence: SE)
  Receive Date: 20170223
  Receipt Date: 20170223
  Transmission Date: 20170428
  Serious: Yes (Life-Threatening, Other)
  Sender: FDA-Public Use
  Company Number: SE-BAYER-2017-031819

PATIENT
  Sex: Female

DRUGS (1)
  1. JAYDESS [Suspect]
     Active Substance: LEVONORGESTREL
     Dosage: 14 MCG/24HR, CONT
     Route: 015
     Dates: start: 201610

REACTIONS (8)
  - Drug ineffective [None]
  - Ectopic pregnancy with contraceptive device [None]
  - Depressed mood [None]
  - Emotional distress [None]
  - Pain [None]
  - Back pain [None]
  - Abdominal pain [None]
  - Haematosalpinx [None]
